FAERS Safety Report 5074463-5 (Version None)
Quarter: 2006Q3

REPORT INFORMATION
  Report Type: 
  Country: None (occurrence: None)
  Receive Date: 20060808
  Receipt Date: 20060616
  Transmission Date: 20061208
  Serious: Yes (Congenital Anomaly, Other)
  Sender: FDA-Public Use
  Company Number: US-BOEHRINGER INGELHEIM PHARMACEUTICALS, INC.-2006-BP-06877BP

PATIENT
  Sex: Male

DRUGS (4)
  1. VIRAMUNE [Suspect]
     Indication: HIV INFECTION
     Route: 015
     Dates: start: 20011016, end: 20011025
  2. COMBIVIR [Suspect]
     Route: 015
     Dates: start: 20010523, end: 20011025
  3. NELFINAVIR [Suspect]
     Route: 015
     Dates: start: 20011016, end: 20011025
  4. ZIDOVUDINE [Suspect]
     Route: 048
     Dates: start: 20011025

REACTIONS (6)
  - DRUG EXPOSURE DURING PREGNANCY [None]
  - FOETAL ALCOHOL SYNDROME [None]
  - NEONATAL RESPIRATORY DISTRESS SYNDROME [None]
  - PYLORIC STENOSIS [None]
  - RETINOPATHY OF PREMATURITY [None]
  - VENTRICULAR SEPTAL DEFECT [None]
